FAERS Safety Report 13969984 (Version 1)
Quarter: 2017Q3

REPORT INFORMATION
  Report Type: Spontaneous
  Country: US (occurrence: US)
  Receive Date: 20170914
  Receipt Date: 20170914
  Transmission Date: 20171128
  Serious: No
  Sender: FDA-Public Use
  Company Number: US-INTERPRAG-PM-OCA2017-00609

PATIENT

DRUGS (2)
  1. OCALIVA [Suspect]
     Active Substance: OBETICHOLIC ACID
     Indication: HEPATITIS C
     Dosage: 10 MG, QD
     Route: 048
     Dates: start: 20170421, end: 20170619
  2. OCALIVA [Suspect]
     Active Substance: OBETICHOLIC ACID
     Indication: BILIARY CIRRHOSIS PRIMARY
     Dosage: 10MG, QD
     Route: 048
     Dates: start: 20161116, end: 201706

REACTIONS (6)
  - Headache [Unknown]
  - Pruritus [Unknown]
  - Pain in extremity [Unknown]
  - Somnolence [Unknown]
  - Movement disorder [Unknown]
  - Confusional state [Unknown]

NARRATIVE: CASE EVENT DATE: 20170429
